FAERS Safety Report 18541800 (Version 1)
Quarter: 2020Q4

REPORT INFORMATION
  Report Type: Spontaneous
  Country: US (occurrence: US)
  Receive Date: 20201124
  Receipt Date: 20201124
  Transmission Date: 20210114
  Serious: Yes (Other)
  Sender: FDA-Public Use
  Company Number: US-BIOMARINAP-US-2020-133463

PATIENT
  Age: 15 Year
  Sex: Female

DRUGS (1)
  1. KUVAN [Suspect]
     Active Substance: SAPROPTERIN DIHYDROCHLORIDE
     Indication: PHENYLKETONURIA
     Dosage: UNK
     Route: 048
     Dates: start: 20070716

REACTIONS (6)
  - Dyspepsia [Unknown]
  - Gastrointestinal pain [Unknown]
  - Gastrooesophageal reflux disease [Unknown]
  - Drug ineffective [Unknown]
  - Eating disorder [Unknown]
  - Hiatus hernia [Unknown]

NARRATIVE: CASE EVENT DATE: 20200802
